FAERS Safety Report 16515722 (Version 1)
Quarter: 2019Q3

REPORT INFORMATION
  Report Type: Spontaneous
  Country: US (occurrence: US)
  Receive Date: 20190522
  Receipt Date: 20190522
  Transmission Date: 20191004
  Serious: No
  Sender: FDA-Public Use
  Company Number: None

PATIENT
  Age: 42 Year
  Sex: Female
  Weight: 58.97 kg

DRUGS (1)
  1. BUPRENORPHINE/NALOXONE [Suspect]
     Active Substance: BUPRENORPHINE\NALOXONE
     Route: 060

REACTIONS (5)
  - Malabsorption [None]
  - Drug level decreased [None]
  - Treatment noncompliance [None]
  - Therapeutic product effect decreased [None]
  - Drug diversion [None]

NARRATIVE: CASE EVENT DATE: 20190425
